FAERS Safety Report 24982432 (Version 1)
Quarter: 2025Q1

REPORT INFORMATION
  Report Type: Spontaneous
  Country: ES (occurrence: ES)
  Receive Date: 20250218
  Receipt Date: 20250218
  Transmission Date: 20250409
  Serious: Yes (Other)
  Sender: SANOFI AVENTIS
  Company Number: None

PATIENT
  Age: 30 Year
  Sex: Female

DRUGS (3)
  1. ENOXAPARIN SODIUM [Suspect]
     Active Substance: ENOXAPARIN SODIUM
     Indication: Superficial vein thrombosis
     Dosage: 60 MG, Q12H
     Route: 058
     Dates: start: 20241109, end: 20241114
  2. ENOXAPARIN SODIUM [Suspect]
     Active Substance: ENOXAPARIN SODIUM
     Indication: Superficial vein thrombosis
     Dosage: 80 MG, Q12H
     Route: 058
     Dates: start: 20241115, end: 20250115
  3. SINTROM [Concomitant]
     Active Substance: ACENOCOUMAROL
     Route: 048
     Dates: start: 20241114, end: 20250115

REACTIONS (1)
  - Eczema [Recovering/Resolving]

NARRATIVE: CASE EVENT DATE: 20250114
